FAERS Safety Report 16278978 (Version 2)
Quarter: 2019Q2

REPORT INFORMATION
  Report Type: Spontaneous
  Country: JP (occurrence: JP)
  Receive Date: 20190506
  Receipt Date: 20190521
  Transmission Date: 20190711
  Serious: Yes (Other)
  Sender: FDA-Public Use
  Company Number: JP-ALLERGAN-1918832US

PATIENT
  Sex: Male

DRUGS (1)
  1. ASENAPINE MALEATE - BP [Suspect]
     Active Substance: ASENAPINE MALEATE
     Indication: EPILEPSY
     Dosage: ACTUAL: 5 MG BID
     Route: 060
     Dates: start: 201903

REACTIONS (2)
  - Off label use [Unknown]
  - Epilepsy [Unknown]

NARRATIVE: CASE EVENT DATE: 201903
